FAERS Safety Report 9006015 (Version 5)
Quarter: 2013Q3

REPORT INFORMATION
  Report Type: Spontaneous
  Country: GB (occurrence: GB)
  Receive Date: 20130109
  Receipt Date: 20130805
  Transmission Date: 20140515
  Serious: Yes (Death, Hospitalization, Other)
  Sender: FDA-Public Use
  Company Number: PHFR2012GB006452

PATIENT
  Age: 72 Year
  Sex: Male
  Weight: 69.8 kg

DRUGS (13)
  1. CLOZARIL [Suspect]
     Indication: SCHIZOPHRENIA
     Dosage: 200 MG, DAILY
     Route: 048
     Dates: start: 20010701
  2. CLOMIPRAMINE [Suspect]
     Indication: SCHIZOPHRENIA
     Dosage: 100 MG, DAILY
     Route: 048
  3. CLOMIPRAMINE [Suspect]
     Dosage: 75 MG, UNK
     Route: 048
     Dates: start: 19970422
  4. DEPAKOTE [Suspect]
     Indication: SCHIZOPHRENIA
     Dosage: 1000 MG, DAILY
     Route: 048
     Dates: start: 20060420
  5. DEPAKOTE [Suspect]
     Dosage: 500 MG, UNK
     Route: 048
     Dates: start: 20060420
  6. CHLORPROMAZINE [Suspect]
     Indication: SCHIZOPHRENIA
     Dosage: 25 MG,
     Route: 048
     Dates: start: 19970422
  7. FLUDROCORTISONE [Concomitant]
     Dosage: 0.1 MG, UNK
     Route: 048
     Dates: start: 20101222
  8. LANSOPRAZOLE [Concomitant]
     Dosage: 30 MG, UNK
     Route: 048
  9. LOXITAN [Concomitant]
     Route: 048
  10. PROCYCLIDINE [Concomitant]
     Dosage: 25 ML, UNK
     Route: 048
     Dates: start: 19980109
  11. LAXIDO [Concomitant]
     Dosage: 15 MG, UNK
     Route: 048
     Dates: start: 20120608
  12. RANITIDINE [Concomitant]
     Dosage: 150 MG, BID
     Route: 048
     Dates: start: 20121123
  13. FERROUS FUMARATE [Concomitant]
     Dosage: 305 MG, UNK
     Dates: start: 20111121

REACTIONS (7)
  - Fall [Fatal]
  - Myocardial infarction [Fatal]
  - Pneumonia [Fatal]
  - Barrett^s oesophagus [Not Recovered/Not Resolved]
  - Prothrombin time shortened [Unknown]
  - Blood creatinine increased [Unknown]
  - Iron deficiency anaemia [Not Recovered/Not Resolved]
